FAERS Safety Report 10175767 (Version 2)
Quarter: 2014Q2

REPORT INFORMATION
  Report Type: Report from Study
  Country: US (occurrence: US)
  Receive Date: 20140516
  Receipt Date: 20140605
  Transmission Date: 20141212
  Serious: Yes (Hospitalization, Other)
  Sender: FDA-Public Use
  Company Number: US-ROCHE-1398402

PATIENT
  Age: 51 Year
  Sex: Female
  Weight: 81.72 kg

DRUGS (6)
  1. HERCEPTIN [Suspect]
     Indication: BREAST CANCER
     Route: 042
     Dates: start: 20140423
  2. CARBOPLATIN [Suspect]
     Indication: BREAST CANCER
     Dosage: AUC5-5
     Route: 042
     Dates: start: 20140422, end: 20140422
  3. TAXOTERE [Suspect]
     Indication: BREAST CANCER
     Route: 042
     Dates: start: 20140422, end: 20140422
  4. NORVASC [Concomitant]
     Indication: BLOOD PRESSURE
     Route: 048
  5. ALOXI [Concomitant]
  6. DEXAMETHASONE [Concomitant]

REACTIONS (12)
  - Chest pain [Recovering/Resolving]
  - Dyspnoea [Recovering/Resolving]
  - Anxiety [Recovering/Resolving]
  - Hypertension [Recovering/Resolving]
  - Nasal congestion [Recovering/Resolving]
  - Ear disorder [Recovering/Resolving]
  - Tremor [Unknown]
  - Upper respiratory tract infection [Unknown]
  - Choking sensation [Unknown]
  - Tachycardia [Unknown]
  - Nervousness [Unknown]
  - Tachypnoea [Unknown]
